FAERS Safety Report 6790608-0 (Version None)
Quarter: 2010Q2

REPORT INFORMATION
  Report Type: 
  Country: None (occurrence: None)
  Receive Date: 20100624
  Receipt Date: 20100621
  Transmission Date: 20101027
  Serious: Yes (Life-Threatening, Hospitalization, Disabling, Other)
  Sender: FDA-Public Use
  Company Number: CA-ASTRAZENECA-2010SE28972

PATIENT
  Age: 49 Year
  Sex: Female
  Weight: 98 kg

DRUGS (8)
  1. SEROQUEL [Suspect]
     Route: 048
  2. APO-DIVALPROEX [Concomitant]
     Route: 065
  3. ASPIRIN [Concomitant]
     Route: 065
  4. CARBAMAZEPINE [Concomitant]
     Route: 065
  5. MULTI-VITAMINS [Concomitant]
     Route: 065
  6. TYLENOL [Concomitant]
     Route: 065
  7. WELLBUTRIN [Concomitant]
     Route: 065
  8. ZYPREXA ZYDIS [Concomitant]
     Route: 065

REACTIONS (12)
  - ARTHRALGIA [None]
  - CARDIAC DISORDER [None]
  - CEREBROVASCULAR ACCIDENT [None]
  - DEPRESSION [None]
  - DEPRESSION SUICIDAL [None]
  - ERYTHEMA [None]
  - EXERCISE TOLERANCE DECREASED [None]
  - HYPOKINESIA [None]
  - IMMUNODEFICIENCY [None]
  - MUSCLE DISORDER [None]
  - PAIN IN EXTREMITY [None]
  - PANIC REACTION [None]
